FAERS Safety Report 18268574 (Version 1)
Quarter: 2020Q3

REPORT INFORMATION
  Report Type: Spontaneous
  Country: US (occurrence: US)
  Receive Date: 20200915
  Receipt Date: 20200915
  Transmission Date: 20201103
  Serious: No
  Sender: FDA-Public Use
  Company Number: US-PERRIGO-19US011760

PATIENT
  Age: 60 Year
  Sex: Female
  Weight: 126.98 kg

DRUGS (1)
  1. MINOXIDIL. [Suspect]
     Active Substance: MINOXIDIL
     Indication: ALOPECIA
     Dosage: 1 ML, SINGLE
     Route: 061
     Dates: start: 20190926, end: 20190926

REACTIONS (2)
  - Application site pain [Recovering/Resolving]
  - Application site pruritus [Recovered/Resolved]

NARRATIVE: CASE EVENT DATE: 20190926
